FAERS Safety Report 16917138 (Version 2)
Quarter: 2019Q4

REPORT INFORMATION
  Report Type: Spontaneous
  Country: MM (occurrence: MM)
  Receive Date: 20191015
  Receipt Date: 20191122
  Transmission Date: 20200122
  Serious: Yes (Death, Hospitalization, Other)
  Sender: FDA-Public Use
  Company Number: MM-BRISTOL-MYERS SQUIBB COMPANY-BMS-2019-098086

PATIENT
  Age: 57 Year
  Sex: Male

DRUGS (1)
  1. OPDIVO [Suspect]
     Active Substance: NIVOLUMAB
     Indication: NON-SMALL CELL LUNG CANCER
     Dosage: 180 MILLIGRAM, Q2WK
     Route: 042
     Dates: start: 20190523

REACTIONS (1)
  - Malignant neoplasm progression [Fatal]
